FAERS Safety Report 10781590 (Version 1)
Quarter: 2015Q1

REPORT INFORMATION
  Report Type: Spontaneous
  Country: US (occurrence: None)
  Receive Date: 20150209
  Receipt Date: 20150209
  Transmission Date: 20150721
  Serious: Yes (Hospitalization)
  Sender: FDA-Public Use
  Company Number: None

PATIENT
  Age: 67 Year
  Sex: Female
  Weight: 73.94 kg

DRUGS (2)
  1. LIDOCAINE 1% INJECTION [Suspect]
     Active Substance: LIDOCAINE
  2. MIDAZOLAM [Suspect]
     Active Substance: MIDAZOLAM\MIDAZOLAM HYDROCHLORIDE

REACTIONS (3)
  - Swollen tongue [None]
  - Lip swelling [None]
  - Pharyngeal oedema [None]

NARRATIVE: CASE EVENT DATE: 20141211
